FAERS Safety Report 6128183-6 (Version None)
Quarter: 2009Q1

REPORT INFORMATION
  Report Type: 
  Country: None (occurrence: None)
  Receive Date: 20090323
  Receipt Date: 20090316
  Transmission Date: 20090719
  Serious: Yes (Hospitalization)
  Sender: FDA-Public Use
  Company Number: NL-ASTRAZENECA-2009AC00867

PATIENT
  Age: 22513 Day
  Sex: Male

DRUGS (5)
  1. ATACAND [Suspect]
     Route: 048
     Dates: start: 20060201, end: 20090309
  2. TAMSULOSINE HCL [Suspect]
     Indication: BENIGN PROSTATIC HYPERPLASIA
     Route: 048
     Dates: start: 20090225
  3. DILTIAZEM HCL [Suspect]
     Route: 048
     Dates: start: 20050101, end: 20090309
  4. PANTOZOL [Concomitant]
     Route: 048
     Dates: start: 20050101
  5. ACETYLSALICYLZUUR [Concomitant]
     Route: 048
     Dates: start: 20050101

REACTIONS (1)
  - HYPOTENSION [None]
